FAERS Safety Report 23866817 (Version 2)
Quarter: 2024Q4

REPORT INFORMATION
  Report Type: Other
  Country: CA (occurrence: CA)
  Receive Date: 20240517
  Receipt Date: 20241023
  Transmission Date: 20250115
  Serious: Yes (Other)
  Sender: LUPIN
  Company Number: CA-LUPIN PHARMACEUTICALS INC.-2024-03924

PATIENT
  Age: 56 Year
  Sex: Female

DRUGS (23)
  1. PROPRANOLOL [Interacting]
     Active Substance: PROPRANOLOL HYDROCHLORIDE
     Indication: Toxicity to various agents
     Dosage: UNK, PROLONGED-RELEASE CAPSULE
     Route: 065
  2. PROPRANOLOL [Interacting]
     Active Substance: PROPRANOLOL HYDROCHLORIDE
     Indication: Nephropathy toxic
     Dosage: UNK
     Route: 065
  3. PROPRANOLOL [Interacting]
     Active Substance: PROPRANOLOL HYDROCHLORIDE
     Indication: Hypertension
     Dosage: UNK, PROLONGED-RELEASE CAPSULE
     Route: 065
  4. PROPRANOLOL [Interacting]
     Active Substance: PROPRANOLOL HYDROCHLORIDE
     Dosage: UNK
     Route: 065
  5. PROPRANOLOL [Interacting]
     Active Substance: PROPRANOLOL HYDROCHLORIDE
     Dosage: UNK
     Route: 065
  6. PROPRANOLOL [Interacting]
     Active Substance: PROPRANOLOL HYDROCHLORIDE
     Dosage: UNK
     Route: 065
  7. AMITRIPTYLINE [Interacting]
     Active Substance: AMITRIPTYLINE
     Indication: Migraine
     Dosage: UNK
     Route: 065
  8. CANDESARTAN CILEXETIL [Interacting]
     Active Substance: CANDESARTAN CILEXETIL
     Indication: Migraine
     Dosage: UNK
     Route: 065
  9. CYMBALTA [Interacting]
     Active Substance: DULOXETINE HYDROCHLORIDE
     Indication: Migraine
     Dosage: UNK
     Route: 065
  10. GABAPENTIN [Interacting]
     Active Substance: GABAPENTIN
     Indication: Migraine
     Dosage: UNK
     Route: 065
  11. MIRTAZAPINE [Interacting]
     Active Substance: MIRTAZAPINE
     Indication: Migraine
     Dosage: UNK
     Route: 065
  12. ONDANSETRON [Interacting]
     Active Substance: ONDANSETRON
     Indication: Migraine
     Dosage: UNK
     Route: 065
  13. OXYCODONE [Interacting]
     Active Substance: OXYCODONE
     Indication: Migraine
     Dosage: UNK
     Route: 065
  14. PERINDOPRIL ERBUMINE [Interacting]
     Active Substance: PERINDOPRIL ERBUMINE
     Indication: Toxicity to various agents
     Dosage: UNK
     Route: 065
  15. PERINDOPRIL ERBUMINE [Interacting]
     Active Substance: PERINDOPRIL ERBUMINE
     Indication: Nephropathy toxic
     Dosage: UNK
     Route: 065
  16. PERINDOPRIL ERBUMINE [Interacting]
     Active Substance: PERINDOPRIL ERBUMINE
     Indication: Hypertension
     Dosage: UNK
     Route: 065
  17. PERINDOPRIL ERBUMINE [Interacting]
     Active Substance: PERINDOPRIL ERBUMINE
     Indication: Migraine
     Dosage: UNK
     Route: 065
  18. PERINDOPRIL ERBUMINE [Interacting]
     Active Substance: PERINDOPRIL ERBUMINE
     Dosage: UNK
     Route: 065
  19. PERINDOPRIL ERBUMINE [Interacting]
     Active Substance: PERINDOPRIL ERBUMINE
     Dosage: UNK
     Route: 065
  20. PERINDOPRIL ERBUMINE [Interacting]
     Active Substance: PERINDOPRIL ERBUMINE
     Dosage: UNK
     Route: 065
  21. PERINDOPRIL ERBUMINE [Interacting]
     Active Substance: PERINDOPRIL ERBUMINE
     Dosage: UNK
     Route: 065
  22. TOPIRAMATE [Interacting]
     Active Substance: TOPIRAMATE
     Indication: Migraine
     Dosage: UNK
     Route: 065
  23. DOMPERIDONE [Concomitant]
     Active Substance: DOMPERIDONE
     Indication: Migraine
     Dosage: UNK
     Route: 065

REACTIONS (13)
  - Contraindicated product administered [Unknown]
  - Depressed level of consciousness [Unknown]
  - Drug ineffective [Unknown]
  - Drug interaction [Unknown]
  - Drug intolerance [Unknown]
  - Electrocardiogram QT prolonged [Unknown]
  - Fall [Unknown]
  - Hypertension [Unknown]
  - Mental disorder [Unknown]
  - Nephropathy toxic [Unknown]
  - Serotonin syndrome [Unknown]
  - Toxicity to various agents [Unknown]
  - Off label use [Unknown]
